FAERS Safety Report 7265526-4 (Version None)
Quarter: 2011Q1

REPORT INFORMATION
  Report Type: 
  Country: None (occurrence: None)
  Receive Date: 20110131
  Receipt Date: 20110124
  Transmission Date: 20110831
  Serious: Yes (Other)
  Sender: FDA-Public Use
  Company Number: US-ROCHE-755835

PATIENT
  Sex: Female
  Weight: 40.4 kg

DRUGS (5)
  1. CLONAZEPAM [Suspect]
     Indication: ANXIETY DISORDER
     Dosage: STRENGTH: 1
     Route: 048
  2. WELLBUTRIN [Concomitant]
  3. KLONOPIN [Suspect]
     Dosage: STRENGTH: 1 AND 2 MG
     Route: 048
  4. CLONAZEPAM [Suspect]
     Route: 065
  5. KLONOPIN [Suspect]
     Indication: ANXIETY DISORDER
     Dosage: STRENGTH: 1 AND 2 MG
     Route: 048

REACTIONS (6)
  - NAUSEA [None]
  - DRUG INTOLERANCE [None]
  - MALAISE [None]
  - HEADACHE [None]
  - ABDOMINAL DISCOMFORT [None]
  - SURGERY [None]
